FAERS Safety Report 6174659-5 (Version None)
Quarter: 2009Q2

REPORT INFORMATION
  Report Type: 
  Country: None (occurrence: None)
  Receive Date: 20090430
  Receipt Date: 20090428
  Transmission Date: 20091009
  Serious: No
  Sender: FDA-Public Use
  Company Number: US-JNJFOC-20090406945

PATIENT
  Sex: Female
  Weight: 82.1 kg

DRUGS (6)
  1. FENTANYL TRANSDERMAL SYSTEM [Suspect]
     Indication: PAIN
     Route: 062
  2. XANAX [Concomitant]
     Indication: PANIC ATTACK
     Route: 048
  3. VICODIN [Concomitant]
     Indication: BREAKTHROUGH PAIN
     Route: 048
  4. NOVOLOG MIX 70/30 [Concomitant]
     Dosage: DOSE: 7 UNITS AT NIGHT
     Route: 042
  5. NOVOLOG MIX 70/30 [Concomitant]
     Indication: DIABETES MELLITUS
     Dosage: DOSE: 25 UNITS IN MORNING
     Route: 042
  6. LEVEMIR [Concomitant]
     Indication: DIABETES MELLITUS
     Dosage: DOSEZ: 100 UNITS DAILY
     Route: 042

REACTIONS (1)
  - WRONG TECHNIQUE IN DRUG USAGE PROCESS [None]
